FAERS Safety Report 8057154-8 (Version None)
Quarter: 2012Q1

REPORT INFORMATION
  Report Type: 
  Country: None (occurrence: None)
  Receive Date: 20120119
  Receipt Date: 20120112
  Transmission Date: 20120608
  Serious: Yes (Other)
  Sender: FDA-Public Use
  Company Number: US-ABBOTT-12P-163-0893234-00

PATIENT
  Sex: Female
  Weight: 90.346 kg

DRUGS (8)
  1. C-PAP [Concomitant]
     Indication: SLEEP APNOEA SYNDROME
  2. SIMVSTATIN [Concomitant]
     Indication: BLOOD CHOLESTEROL
  3. LISINOPRIL [Concomitant]
     Indication: BLOOD PRESSURE
  4. LOSARTAN POTASSIUM [Concomitant]
     Indication: BLOOD PRESSURE
  5. VITAMIN B-12 [Concomitant]
     Indication: PRODUCT USED FOR UNKNOWN INDICATION
     Route: 050
  6. ATENOLOL [Concomitant]
     Indication: BLOOD PRESSURE
  7. MULTI-VITAMIN [Concomitant]
     Indication: VITAMIN SUPPLEMENTATION
  8. HUMIRA [Suspect]
     Indication: CROHN'S DISEASE
     Dates: start: 20070101

REACTIONS (12)
  - WEIGHT INCREASED [None]
  - BACK PAIN [None]
  - RENAL PAIN [None]
  - BACTERIAL SEPSIS [None]
  - CHOLELITHIASIS [None]
  - HEPATIC CIRRHOSIS [None]
  - ABDOMINAL PAIN UPPER [None]
  - BLOOD GLUCOSE INCREASED [None]
  - HYPOTENSION [None]
  - PARAESTHESIA [None]
  - FLATULENCE [None]
  - HEPATIC STEATOSIS [None]
